FAERS Safety Report 20554809 (Version 1)
Quarter: 2022Q1

REPORT INFORMATION
  Report Type: Report from Study
  Country: US (occurrence: US)
  Receive Date: 20220304
  Receipt Date: 20220304
  Transmission Date: 20220423
  Serious: Yes (Other)
  Sender: FDA-Public Use
  Company Number: US-PFIZER INC-202200334635

PATIENT
  Age: 50 Year

DRUGS (2)
  1. TEMSIROLIMUS [Suspect]
     Active Substance: TEMSIROLIMUS
     Indication: Malignant peritoneal neoplasm
     Dosage: UNK UNK, CYCLIC (DAY 1, 8 15, 22 OF EACH CYCLE OVER 30 MIN, WEEKLY)
     Route: 042
  2. CEDIRANIB [Suspect]
     Active Substance: CEDIRANIB
     Indication: Malignant peritoneal neoplasm
     Dosage: 15 MG, DAILY
     Route: 048

REACTIONS (1)
  - Liver function test abnormal [Unknown]
